FAERS Safety Report 14847132 (Version 1)
Quarter: 2018Q2

REPORT INFORMATION
  Report Type: Spontaneous
  Country: GB (occurrence: GB)
  Receive Date: 20180504
  Receipt Date: 20180504
  Transmission Date: 20180711
  Serious: Yes (Death)
  Sender: FDA-Public Use
  Company Number: GB-TEVA-2018-GB-888175

PATIENT
  Age: 68 Year
  Sex: Male

DRUGS (1)
  1. AMITRIPTYLINE [Suspect]
     Active Substance: AMITRIPTYLINE
     Indication: ANXIETY
     Route: 048

REACTIONS (3)
  - Hallucination [Fatal]
  - Completed suicide [Fatal]
  - Nightmare [Fatal]

NARRATIVE: CASE EVENT DATE: 201610
